FAERS Safety Report 11535966 (Version 1)
Quarter: 2015Q3

REPORT INFORMATION
  Report Type: Spontaneous
  Country: US (occurrence: None)
  Receive Date: 20150921
  Receipt Date: 20150921
  Transmission Date: 20151125
  Serious: Yes (Disabling)
  Sender: FDA-Public Use
  Company Number: None

PATIENT
  Age: 32 Year
  Sex: Female
  Weight: 90.72 kg

DRUGS (11)
  1. REMERON [Concomitant]
     Active Substance: MIRTAZAPINE
  2. KLONOPIN [Concomitant]
     Active Substance: CLONAZEPAM
  3. LITHIUM. [Concomitant]
     Active Substance: LITHIUM
  4. LUNESTA [Concomitant]
     Active Substance: ESZOPICLONE
  5. MIRTAZAPINE 45 MG APOTX [Suspect]
     Active Substance: MIRTAZAPINE
     Indication: PSYCHOTIC DISORDER
     Dosage: 1 PILL
     Route: 048
  6. EFFEXOR XR [Concomitant]
     Active Substance: VENLAFAXINE HYDROCHLORIDE
  7. MIRTAZAPINE 45 MG APOTX [Suspect]
     Active Substance: MIRTAZAPINE
     Indication: MAJOR DEPRESSION
     Dosage: 1 PILL
     Route: 048
  8. INDERAL [Concomitant]
     Active Substance: PROPRANOLOL HYDROCHLORIDE
  9. MIRTAZAPINE 45 MG APOTX [Suspect]
     Active Substance: MIRTAZAPINE
     Indication: ANXIETY
     Dosage: 1 PILL
     Route: 048
  10. TOPAMAX [Concomitant]
     Active Substance: TOPIRAMATE
  11. DEXILANT [Concomitant]
     Active Substance: DEXLANSOPRAZOLE

REACTIONS (1)
  - Alopecia [None]

NARRATIVE: CASE EVENT DATE: 20150515
